FAERS Safety Report 12185274 (Version 1)
Quarter: 2016Q1

REPORT INFORMATION
  Report Type: Spontaneous
  Country: JP (occurrence: JP)
  Receive Date: 20160316
  Receipt Date: 20160316
  Transmission Date: 20160526
  Serious: Yes (Other)
  Sender: FDA-Public Use
  Company Number: PHHY2016JP033899

PATIENT
  Age: 87 Year
  Sex: Male

DRUGS (6)
  1. ALTEPLASE [Interacting]
     Active Substance: ALTEPLASE
     Indication: HEMIPARESIS
     Route: 041
  2. ALTEPLASE [Interacting]
     Active Substance: ALTEPLASE
     Indication: APHASIA
  3. ALTEPLASE [Interacting]
     Active Substance: ALTEPLASE
     Indication: DYSARTHRIA
  4. ENALAPRIL [Suspect]
     Active Substance: ENALAPRIL
     Indication: HYPERTENSION
     Dosage: 10 MG, QD
     Route: 065
  5. AZELNIDIPINE [Concomitant]
     Active Substance: AZELNIDIPINE
     Indication: PRODUCT USED FOR UNKNOWN INDICATION
     Dosage: 16 MG, QD
     Route: 065
  6. OLMESARTAN [Concomitant]
     Active Substance: OLMESARTAN
     Indication: PRODUCT USED FOR UNKNOWN INDICATION
     Dosage: 40 MG, QD
     Route: 065

REACTIONS (2)
  - Angioedema [Recovered/Resolved]
  - Drug interaction [Recovered/Resolved]
